FAERS Safety Report 19815434 (Version 2)
Quarter: 2022Q2

REPORT INFORMATION
  Report Type: Spontaneous
  Country: US (occurrence: None)
  Receive Date: 20210910
  Receipt Date: 20220408
  Transmission Date: 20220721
  Serious: Yes (Other)
  Sender: FDA-Public Use
  Company Number: 2021A710453

PATIENT
  Sex: Male
  Weight: 149.7 kg

DRUGS (54)
  1. NEXIUM [Suspect]
     Active Substance: ESOMEPRAZOLE MAGNESIUM
     Indication: Gastrooesophageal reflux disease
     Route: 048
     Dates: start: 2002, end: 2018
  2. NEXIUM 24HR [Suspect]
     Active Substance: ESOMEPRAZOLE MAGNESIUM
     Indication: Gastrooesophageal reflux disease
     Route: 048
     Dates: start: 2002, end: 2018
  3. NEXIUM 24HR [Suspect]
     Active Substance: ESOMEPRAZOLE MAGNESIUM
     Indication: Gastrooesophageal reflux disease
     Route: 048
     Dates: start: 2014, end: 2018
  4. PRILOSEC [Suspect]
     Active Substance: OMEPRAZOLE MAGNESIUM
     Indication: Gastrooesophageal reflux disease
     Route: 048
     Dates: start: 2002, end: 2018
  5. PRILOSEC [Suspect]
     Active Substance: OMEPRAZOLE MAGNESIUM
     Indication: Gastrooesophageal reflux disease
     Dosage: GENERIC
     Route: 065
     Dates: start: 2020
  6. PREVACID [Suspect]
     Active Substance: LANSOPRAZOLE
     Indication: Gastrooesophageal reflux disease
     Route: 065
     Dates: start: 2002, end: 2018
  7. PROTONIX [Suspect]
     Active Substance: PANTOPRAZOLE SODIUM
     Indication: Gastrooesophageal reflux disease
     Route: 065
     Dates: start: 2002, end: 2018
  8. PROTONIX [Suspect]
     Active Substance: PANTOPRAZOLE SODIUM
     Indication: Gastrooesophageal reflux disease
     Dosage: GENERIC
     Route: 065
     Dates: start: 2017, end: 2020
  9. ATORVASTATIN [Concomitant]
     Active Substance: ATORVASTATIN
     Indication: Blood cholesterol
  10. AMOXICILLIN [Concomitant]
     Active Substance: AMOXICILLIN
     Indication: Infection
  11. LASIX [Concomitant]
     Active Substance: FUROSEMIDE
     Indication: Fluid retention
  12. LISINOPRIL [Concomitant]
     Active Substance: LISINOPRIL
     Indication: Hypertension
  13. VITAMIN D [Concomitant]
     Active Substance: VITAMIN D NOS
  14. IBUPROFEN [Concomitant]
     Active Substance: IBUPROFEN
  15. FAMOTIDINE [Concomitant]
     Active Substance: FAMOTIDINE
  16. METOLAZONE [Concomitant]
     Active Substance: METOLAZONE
  17. TOPROL XL [Concomitant]
     Active Substance: METOPROLOL SUCCINATE
  18. LIPITOR [Concomitant]
     Active Substance: ATORVASTATIN CALCIUM
  19. FLOMAX [Concomitant]
     Active Substance: TAMSULOSIN HYDROCHLORIDE
  20. ELIQUIS [Concomitant]
     Active Substance: APIXABAN
  21. CARDURA [Concomitant]
     Active Substance: DOXAZOSIN MESYLATE
  22. CATAPRES [Concomitant]
     Active Substance: CLONIDINE HYDROCHLORIDE
  23. BENICAR [Concomitant]
     Active Substance: OLMESARTAN MEDOXOMIL
  24. NYSTATIN [Concomitant]
     Active Substance: NYSTATIN
  25. HYDROCODONE BITARTRATE AND ACETAMINOPHEN [Concomitant]
     Active Substance: ACETAMINOPHEN\HYDROCODONE BITARTRATE
  26. AMOXICILLIN\CLAVULANATE POTASSIUM [Concomitant]
     Active Substance: AMOXICILLIN\CLAVULANATE POTASSIUM
  27. TRAZODONE [Concomitant]
     Active Substance: TRAZODONE HYDROCHLORIDE
  28. ROCEPHIN [Concomitant]
     Active Substance: CEFTRIAXONE SODIUM
  29. CRESTOR [Concomitant]
     Active Substance: ROSUVASTATIN CALCIUM
  30. EXFORGE [Concomitant]
     Active Substance: AMLODIPINE BESYLATE\VALSARTAN
  31. METFORMIN [Concomitant]
     Active Substance: METFORMIN HYDROCHLORIDE
  32. TAMSULOSIN HYDROCHLORIDE [Concomitant]
     Active Substance: TAMSULOSIN HYDROCHLORIDE
  33. CLONIDINE HYDROCHLORIDE [Concomitant]
     Active Substance: CLONIDINE HYDROCHLORIDE
  34. DOXAZOSIN MESYLATE [Concomitant]
     Active Substance: DOXAZOSIN MESYLATE
  35. SPIRIVA [Concomitant]
     Active Substance: TIOTROPIUM BROMIDE MONOHYDRATE
  36. PROAIR HFA [Concomitant]
     Active Substance: ALBUTEROL SULFATE
  37. LEVOFLOXACIN [Concomitant]
     Active Substance: LEVOFLOXACIN
  38. CYPROHEPATADINE HCL [Concomitant]
  39. LANTUS SOLOSTAR [Concomitant]
     Active Substance: INSULIN GLARGINE
  40. RANITIDINE HYDROCHLORIDE [Concomitant]
     Active Substance: RANITIDINE HYDROCHLORIDE
  41. AMITIZA [Concomitant]
     Active Substance: LUBIPROSTONE
  42. LINEZOLID [Concomitant]
     Active Substance: LINEZOLID
  43. ALBUTEROL\IPRATROPIUM [Concomitant]
     Active Substance: ALBUTEROL\IPRATROPIUM
  44. TRIAMCINOLONE ACETONIDE [Concomitant]
     Active Substance: TRIAMCINOLONE ACETONIDE
  45. CEFDINIR [Concomitant]
     Active Substance: CEFDINIR
  46. APIXABAN [Concomitant]
     Active Substance: APIXABAN
  47. CALCITRIOL [Concomitant]
     Active Substance: CALCITRIOL
  48. MEROPENEM [Concomitant]
     Active Substance: MEROPENEM
  49. VANCOMYCIN HYDROCHLORIDE [Concomitant]
     Active Substance: VANCOMYCIN HYDROCHLORIDE
  50. FOLIC ACID [Concomitant]
     Active Substance: FOLIC ACID
  51. FERROUS SULFATE [Concomitant]
     Active Substance: FERROUS SULFATE
  52. BUDESONIDE [Concomitant]
     Active Substance: BUDESONIDE
  53. KETOCONAZOLE [Concomitant]
     Active Substance: KETOCONAZOLE
     Route: 065
     Dates: start: 2002, end: 2018
  54. KETOCONAZOLE [Concomitant]
     Active Substance: KETOCONAZOLE
     Dosage: GENERIC
     Route: 065
     Dates: start: 2017, end: 2020

REACTIONS (5)
  - Acute kidney injury [Unknown]
  - Chronic kidney disease [Unknown]
  - End stage renal disease [Unknown]
  - Nephrogenic anaemia [Unknown]
  - Renal failure [Unknown]
